FAERS Safety Report 20336084 (Version 1)
Quarter: 2022Q1

REPORT INFORMATION
  Report Type: Spontaneous
  Country: US (occurrence: None)
  Receive Date: 20220113
  Receipt Date: 20220113
  Transmission Date: 20220423
  Serious: Yes (Hospitalization)
  Sender: FDA-Public Use
  Company Number: None

PATIENT
  Age: 63 Year
  Sex: Female
  Weight: 62.1 kg

DRUGS (5)
  1. JYNARQUE [Suspect]
     Active Substance: TOLVAPTAN
     Indication: Congenital cystic kidney disease
     Dosage: OTHER FREQUENCY : QAM + 8 HRS LATER; ????
     Route: 048
     Dates: start: 20201220, end: 202109
  2. TYLENOL [Suspect]
     Active Substance: ACETAMINOPHEN
     Indication: Product used for unknown indication
     Dosage: OTHER FREQUENCY : LARGE DOSES;?
  3. LISINOPRIL [Concomitant]
     Active Substance: LISINOPRIL
  4. CALCITRIOL [Concomitant]
     Active Substance: CALCITRIOL
  5. TRAMADOL [Concomitant]
     Active Substance: TRAMADOL

REACTIONS (6)
  - Back pain [None]
  - Abdominal pain [None]
  - Aspartate aminotransferase increased [None]
  - Alanine aminotransferase increased [None]
  - Inappropriate schedule of product administration [None]
  - Therapy cessation [None]

NARRATIVE: CASE EVENT DATE: 20201220
